FAERS Safety Report 20677074 (Version 1)
Quarter: 2022Q2

REPORT INFORMATION
  Report Type: Spontaneous
  Country: US (occurrence: None)
  Receive Date: 20220406
  Receipt Date: 20220406
  Transmission Date: 20220720
  Serious: Yes (Other)
  Sender: FDA-Public Use
  Company Number: US-MLMSERVICE-20220322-3444037-2

PATIENT
  Age: 16 Year
  Sex: Female

DRUGS (1)
  1. DOXYCYCLINE [Suspect]
     Active Substance: DOXYCYCLINE
     Indication: Lyme disease
     Dosage: UNKNOWN
     Route: 065

REACTIONS (4)
  - Skin burning sensation [Recovering/Resolving]
  - Eczema [Recovering/Resolving]
  - Mast cell activation syndrome [Recovering/Resolving]
  - Condition aggravated [Recovering/Resolving]
